FAERS Safety Report 8631187 (Version 2)
Quarter: 2012Q4

REPORT INFORMATION
  Report Type: 
  Country: FR (occurrence: FR)
  Receive Date: 20120622
  Receipt Date: 20120913
  Transmission Date: 20130627
  Serious: Yes (Hospitalization)
  Sender: FDA-Public Use
  Company Number: FR-ELI_LILLY_AND_COMPANY-FR201206005933

PATIENT
  Age: 65 Year
  Sex: Male
  Weight: 80 kg

DRUGS (4)
  1. ALIMTA [Suspect]
     Indication: LUNG NEOPLASM MALIGNANT
     Dosage: 970 mg, unknown
     Route: 042
     Dates: start: 20120613, end: 20120613
  2. DEXAMETHASONE [Concomitant]
     Dosage: 4 mg, bid
     Route: 065
  3. ZOPHREN [Concomitant]
     Indication: NAUSEA
     Dosage: 8 mg, unknown
     Route: 042
     Dates: start: 20120613, end: 20120613
  4. CARBOPLATIN [Concomitant]
     Dosage: UNK, unknown
     Route: 065

REACTIONS (1)
  - Anaphylactic shock [Recovered/Resolved]
